FAERS Safety Report 7470305-9 (Version None)
Quarter: 2011Q2

REPORT INFORMATION
  Report Type: 
  Country: None (occurrence: None)
  Receive Date: 20110510
  Receipt Date: 20110503
  Transmission Date: 20111010
  Serious: Yes (Hospitalization)
  Sender: FDA-Public Use
  Company Number: CZ-BAXTER-2011BH014149

PATIENT
  Sex: Male

DRUGS (2)
  1. GAMMAGARD LIQUID [Suspect]
     Indication: IMMUNODEFICIENCY COMMON VARIABLE
     Dates: start: 20110429, end: 20110429
  2. PREDNISONE [Concomitant]
     Indication: SARCOIDOSIS
     Route: 065

REACTIONS (4)
  - RASH [None]
  - ERYTHEMA [None]
  - BLISTER [None]
  - SWELLING FACE [None]
